FAERS Safety Report 11571213 (Version 1)
Quarter: 2015Q3

REPORT INFORMATION
  Report Type: Spontaneous
  Country: US (occurrence: US)
  Receive Date: 20150916
  Receipt Date: 20150916
  Transmission Date: 20151125
  Serious: No
  Sender: FDA-Public Use
  Company Number: US-ELI_LILLY_AND_COMPANY-US200909004442

PATIENT
  Sex: Female

DRUGS (2)
  1. FORTEO [Suspect]
     Active Substance: TERIPARATIDE
     Dosage: UNK, UNKNOWN
  2. FORTEO [Suspect]
     Active Substance: TERIPARATIDE
     Dosage: UNK, UNKNOWN
     Dates: start: 20090911

REACTIONS (9)
  - Headache [Not Recovered/Not Resolved]
  - Poor peripheral circulation [Unknown]
  - Sleep disorder [Unknown]
  - Hypoaesthesia [Recovered/Resolved]
  - Fall [Recovered/Resolved]
  - Nausea [Not Recovered/Not Resolved]
  - Psychomotor hyperactivity [Unknown]
  - Feeling of body temperature change [Unknown]
  - Nervousness [Unknown]

NARRATIVE: CASE EVENT DATE: 2009
